FAERS Safety Report 8241372-X (Version None)
Quarter: 2012Q1

REPORT INFORMATION
  Report Type: 
  Country: None (occurrence: None)
  Receive Date: 20120328
  Receipt Date: 20120323
  Transmission Date: 20120608
  Serious: Yes (Hospitalization, Other)
  Sender: FDA-Public Use
  Company Number: GXBR2011US04782

PATIENT
  Sex: Male
  Weight: 143.76 kg

DRUGS (14)
  1. AMIODARONE HYDROCHLORIDE [Suspect]
     Dosage: 200 MG, QD
     Route: 048
     Dates: start: 20110926
  2. AMIODARONE HYDROCHLORIDE [Suspect]
     Indication: ATRIAL FIBRILLATION
     Dosage: 200 MG, BID
     Route: 048
     Dates: end: 20110925
  3. HYDRALAZINE HCL [Concomitant]
     Indication: HYPERTENSION
     Dosage: UNK MG, UNK
  4. SIMVASTATIN [Suspect]
     Indication: ATHEROSCLEROSIS PROPHYLAXIS
     Dosage: UNK MG, UNK
  5. WARFARIN SODIUM [Suspect]
     Indication: ANTICOAGULANT THERAPY
     Dosage: UNK MG, UNK
  6. AMIODARONE HYDROCHLORIDE [Suspect]
     Dosage: 100 MG, QD
     Route: 048
  7. LISINOPRIL [Concomitant]
     Indication: HYPERTENSION
     Dosage: UNK MG, UNK
  8. BUMEX [Concomitant]
     Dosage: UNK MG, UNK
  9. CARVEDILOL [Suspect]
     Indication: HYPERTENSION
     Dosage: UNK MG, UNK
  10. PLAVIX [Suspect]
     Indication: ANTICOAGULANT THERAPY
     Dosage: UNK MG, UNK
  11. FAMOTIDINE [Concomitant]
     Indication: GASTROOESOPHAGEAL REFLUX DISEASE
     Dosage: UNK MG, UNK
  12. ASPIRIN [Suspect]
     Dosage: UNK MG, UNK
  13. TRAMADOL HCL [Concomitant]
     Dosage: UNK MG, UNK
  14. TERAZOSIN HCL [Concomitant]
     Indication: PROSTATIC DISORDER
     Dosage: UNK MG, UNK

REACTIONS (12)
  - BLINDNESS [None]
  - DRUG INTERACTION [None]
  - PROTHROMBIN TIME PROLONGED [None]
  - HAEMOGLOBIN DECREASED [None]
  - EYE SWELLING [None]
  - FEELING ABNORMAL [None]
  - COLON CANCER [None]
  - VISION BLURRED [None]
  - RETINAL HAEMORRHAGE [None]
  - INTERNATIONAL NORMALISED RATIO INCREASED [None]
  - RETINAL TEAR [None]
  - ANAEMIA [None]
